FAERS Safety Report 13053318 (Version 2)
Quarter: 2017Q1

REPORT INFORMATION
  Report Type: Spontaneous
  Country: ES (occurrence: ES)
  Receive Date: 20161222
  Receipt Date: 20170208
  Transmission Date: 20170428
  Serious: Yes (Other)
  Sender: FDA-Public Use
  Company Number: ES-BIOGEN-2016BI00332735

PATIENT
  Age: 32 Year
  Sex: Female

DRUGS (4)
  1. TECFIDERA [Suspect]
     Active Substance: DIMETHYL FUMARATE
     Indication: RELAPSING-REMITTING MULTIPLE SCLEROSIS
     Dosage: MAINTENANCE DOSE
     Route: 048
     Dates: start: 20160801
  2. SINTROM [Concomitant]
     Active Substance: ACENOCOUMAROL
     Indication: DEEP VEIN THROMBOSIS
     Route: 065
  3. TECFIDERA [Suspect]
     Active Substance: DIMETHYL FUMARATE
     Route: 065
     Dates: start: 20160831
  4. HIBOR [Concomitant]
     Active Substance: BEMIPARIN SODIUM
     Indication: DEEP VEIN THROMBOSIS
     Route: 065
     Dates: start: 20161006

REACTIONS (2)
  - Haematuria [Not Recovered/Not Resolved]
  - Urinary tract infection [Unknown]

NARRATIVE: CASE EVENT DATE: 20161216
